FAERS Safety Report 5291356-9 (Version None)
Quarter: 2007Q2

REPORT INFORMATION
  Report Type: 
  Country: None (occurrence: None)
  Receive Date: 20070409
  Receipt Date: 20070405
  Transmission Date: 20071010
  Serious: Yes (Hospitalization)
  Sender: FDA-Public Use
  Company Number: IT-MERCK-0704ITA00004

PATIENT
  Age: 54 Year
  Sex: Female

DRUGS (1)
  1. MODURETIC 5-50 [Suspect]
     Indication: OEDEMA PERIPHERAL
     Route: 048
     Dates: start: 20070327, end: 20070327

REACTIONS (1)
  - ANAPHYLACTIC SHOCK [None]
